FAERS Safety Report 16719068 (Version 1)
Quarter: 2019Q3

REPORT INFORMATION
  Report Type: Spontaneous
  Country: DE (occurrence: DE)
  Receive Date: 20190820
  Receipt Date: 20190820
  Transmission Date: 20191005
  Serious: Yes (Hospitalization)
  Sender: FDA-Public Use
  Company Number: DE-SA-2019SA219483

PATIENT
  Age: 86 Year
  Sex: Male

DRUGS (17)
  1. CALCIUM CARBONATE. [Concomitant]
     Active Substance: CALCIUM CARBONATE
     Dosage: UNK, QD (NK MG, 1-0-0-0)
  2. METAMIZOLE [Concomitant]
     Active Substance: METAMIZOLE
     Dosage: 500 MG, PRN (500 MG, IF REQUIRED)
  3. ACETYLCYSTEINE. [Concomitant]
     Active Substance: ACETYLCYSTEINE
     Dosage: 200 MG,BID 1-0-1-0
  4. BISACODYL. [Concomitant]
     Active Substance: BISACODYL
     Dosage: NK MG, IF REPORTED
  5. CLOPIDOGREL BISULFATE. [Suspect]
     Active Substance: CLOPIDOGREL BISULFATE
     Dosage: 75 MG,QD 1-0-0-0
  6. LOPERAMIDE [Concomitant]
     Active Substance: LOPERAMIDE
     Dosage: IF NECESSARY (SHORTNESS OF BREATH)
  7. SALBUTAMOL [Concomitant]
     Active Substance: ALBUTEROL
     Dosage: IF REQUIRED
     Route: 055
  8. TORASEMID [Concomitant]
     Active Substance: TORSEMIDE
     Dosage: 10 MG,QD 1-0-0-0
  9. RAMIPRIL. [Concomitant]
     Active Substance: RAMIPRIL
     Dosage: 2.5 MG,BID  1-0-1-0
  10. PANTOPRAZOLE [Concomitant]
     Active Substance: PANTOPRAZOLE
     Dosage: 40 MG, BID
  11. IPRATROPIUM BROMIDE. [Concomitant]
     Active Substance: IPRATROPIUM BROMIDE
     Dosage: UNK, TID (NK ?G, 1-1-1-0)
     Route: 055
  12. OLODATEROL HYDROCHLORIDE;TIOTROPIUM BROMIDE [Concomitant]
     Dosage: NK HUB, 2-0-0-0
     Route: 055
  13. TAMSULOSIN [Concomitant]
     Active Substance: TAMSULOSIN
     Dosage: 0.4 MG, 1-0-0-0
  14. COLECALCIFEROL [Concomitant]
     Active Substance: CHOLECALCIFEROL
     Dosage: 1000 UNK, QD (1000 IE, 1-0-0-0)
  15. FOLIC ACID. [Concomitant]
     Active Substance: FOLIC ACID
     Dosage: 5 MG,QD 1-0-0-0
  16. KALIUMCITRAT [Concomitant]
     Dosage: NK MG, 1-0-0-0
  17. PREDNISOLON [PREDNISOLONE] [Concomitant]
     Active Substance: PREDNISOLONE
     Dosage: 20 MG,QD 1-0-0-0

REACTIONS (3)
  - General physical health deterioration [Unknown]
  - Dyspnoea exertional [Unknown]
  - Dizziness [Unknown]
